FAERS Safety Report 7779578-6 (Version None)
Quarter: 2011Q3

REPORT INFORMATION
  Report Type: 
  Country: None (occurrence: None)
  Receive Date: 20110927
  Receipt Date: 20110919
  Transmission Date: 20111222
  Serious: Yes (Other)
  Sender: FDA-Public Use
  Company Number: US-CELGENEUS-163-20785-11081223

PATIENT
  Sex: Female

DRUGS (2)
  1. THALOMID [Suspect]
     Indication: MYELOFIBROSIS
     Dosage: 50 MILLIGRAM
     Route: 048
     Dates: start: 20110301, end: 20110101
  2. LIPITOR [Concomitant]
     Route: 065

REACTIONS (3)
  - THROAT TIGHTNESS [None]
  - THROAT IRRITATION [None]
  - THROMBOCYTOPENIA [None]
